FAERS Safety Report 18071683 (Version 3)
Quarter: 2020Q3

REPORT INFORMATION
  Report Type: Spontaneous
  Country: US (occurrence: US)
  Receive Date: 20200727
  Receipt Date: 20200814
  Transmission Date: 20201103
  Serious: No
  Sender: FDA-Public Use
  Company Number: US-GLAXOSMITHKLINE-US2020AMR141429

PATIENT
  Sex: Female

DRUGS (1)
  1. ZEJULA [Suspect]
     Active Substance: NIRAPARIB
     Indication: OVARIAN CANCER
     Dosage: 200 MG, QD
     Route: 048
     Dates: start: 20200701

REACTIONS (8)
  - Glossodynia [Unknown]
  - White blood cell count decreased [Unknown]
  - Liver disorder [Unknown]
  - Blood glucose increased [Unknown]
  - Blood pressure increased [Unknown]
  - Fatigue [Unknown]
  - Hot flush [Unknown]
  - Off label use [Unknown]
